FAERS Safety Report 14916728 (Version 3)
Quarter: 2020Q3

REPORT INFORMATION
  Report Type: Spontaneous
  Country: US (occurrence: US)
  Receive Date: 20180520
  Receipt Date: 20200828
  Transmission Date: 20201102
  Serious: Yes (Death, Hospitalization)
  Sender: FDA-Public Use
  Company Number: US-JNJFOC-20180510812

PATIENT
  Age: 76 Year
  Sex: Male

DRUGS (5)
  1. XARELTO [Suspect]
     Active Substance: RIVAROXABAN
     Indication: ATRIAL FIBRILLATION
     Dosage: PID (SIC)
     Route: 048
     Dates: start: 20150730, end: 20150829
  2. XARELTO [Suspect]
     Active Substance: RIVAROXABAN
     Route: 048
     Dates: start: 201501
  3. XARELTO [Suspect]
     Active Substance: RIVAROXABAN
     Indication: CEREBROVASCULAR ACCIDENT PROPHYLAXIS
     Route: 048
     Dates: start: 2012
  4. XARELTO [Suspect]
     Active Substance: RIVAROXABAN
     Dosage: PID (SIC)
     Route: 048
     Dates: start: 20151022, end: 20160227
  5. XARELTO [Suspect]
     Active Substance: RIVAROXABAN
     Indication: THROMBOSIS PROPHYLAXIS
     Dosage: PID (SIC)
     Route: 048
     Dates: start: 20150205, end: 20150406

REACTIONS (2)
  - Epistaxis [Unknown]
  - Lower gastrointestinal haemorrhage [Recovering/Resolving]

NARRATIVE: CASE EVENT DATE: 20150105
